FAERS Safety Report 5069829-3 (Version None)
Quarter: 2006Q3

REPORT INFORMATION
  Report Type: 
  Country: None (occurrence: None)
  Receive Date: 20060731
  Receipt Date: 20060721
  Transmission Date: 20061208
  Serious: Yes (Life-Threatening, Hospitalization)
  Sender: FDA-Public Use
  Company Number: TR-2005-007582

PATIENT
  Age: 55 Year
  Sex: Male

DRUGS (7)
  1. ULTRAVIST 370 [Suspect]
     Indication: ARTERIOGRAM CORONARY
     Dosage: 1 DOSE, INTRA-ARTERIAL
     Route: 013
     Dates: start: 20050511, end: 20050511
  2. CORASPIN (ACETYLSALICYLIC ACID) [Concomitant]
  3. DIAMICRON (GLICLAZIDE) [Concomitant]
  4. PLAVIX [Concomitant]
  5. LIPITOR [Concomitant]
  6. TENSINOR [Concomitant]
  7. DELIX (RAMIRIL) [Concomitant]

REACTIONS (2)
  - CONTRAST MEDIA REACTION [None]
  - DIPLOPIA [None]
